FAERS Safety Report 10239391 (Version 1)
Quarter: 2014Q2

REPORT INFORMATION
  Report Type: Report from Study
  Country: US (occurrence: US)
  Receive Date: 20140616
  Receipt Date: 20140616
  Transmission Date: 20141212
  Serious: No
  Sender: FDA-Public Use
  Company Number: US-ABBVIE-14P-163-1235363-00

PATIENT
  Sex: Female
  Weight: 46.31 kg

DRUGS (3)
  1. LUPANETA PACK [Suspect]
     Indication: ENDOMETRIOSIS
     Route: 030
     Dates: start: 20140420
  2. LUPANETA PACK [Suspect]
     Indication: ENDOMETRIOSIS
     Route: 048
     Dates: start: 20140420
  3. QUETIAPINE [Concomitant]
     Indication: PRODUCT USED FOR UNKNOWN INDICATION

REACTIONS (1)
  - Haemorrhage [Recovered/Resolved]
